FAERS Safety Report 17380187 (Version 1)
Quarter: 2020Q1

REPORT INFORMATION
  Report Type: Spontaneous
  Country: US (occurrence: US)
  Receive Date: 20200206
  Receipt Date: 20200206
  Transmission Date: 20200409
  Serious: Yes (Disabling, Other)
  Sender: FDA-Public Use
  Company Number: None

PATIENT
  Sex: Female
  Weight: 68.85 kg

DRUGS (7)
  1. ZOOLOFT [Concomitant]
  2. IRON [Concomitant]
     Active Substance: IRON
  3. NAPROXEN 500 MG [Suspect]
     Active Substance: NAPROXEN
  4. VITAMIN B [Concomitant]
     Active Substance: VITAMIN B
  5. LAMOTRIGINE. [Concomitant]
     Active Substance: LAMOTRIGINE
  6. VITAMIN D [Concomitant]
     Active Substance: VITAMIN D NOS
  7. GABAPETIN 300 MG CAPSULES [Suspect]
     Active Substance: GABAPENTIN
     Indication: BACK PAIN
     Dosage: ?          QUANTITY:3 CAPSULE(S);?
     Route: 048
     Dates: start: 20191021

REACTIONS (21)
  - Arthralgia [None]
  - Dysphagia [None]
  - Peripheral swelling [None]
  - Depression [None]
  - Vision blurred [None]
  - Anger [None]
  - Agitation [None]
  - Panic attack [None]
  - Restlessness [None]
  - Irritability [None]
  - Constipation [None]
  - Anxiety [None]
  - Diarrhoea [None]
  - Weight increased [None]
  - Dysphonia [None]
  - Tremor [None]
  - Muscle spasms [None]
  - Screaming [None]
  - Aggression [None]
  - Dry mouth [None]
  - Insomnia [None]
